FAERS Safety Report 10160676 (Version 1)
Quarter: 2020Q3

REPORT INFORMATION
  Report Type: Report from Study
  Country: US (occurrence: US)
  Receive Date: 20140508
  Receipt Date: 20140508
  Transmission Date: 20201104
  Serious: Yes (Other)
  Sender: FDA-Public Use
  Company Number: US-ROCHE-1393157

PATIENT

DRUGS (5)
  1. BEVACIZUMAB. [Suspect]
     Active Substance: BEVACIZUMAB
     Route: 042
  2. CEDIRANIB. [Suspect]
     Active Substance: CEDIRANIB
     Route: 042
  3. BEVACIZUMAB. [Suspect]
     Active Substance: BEVACIZUMAB
     Indication: NEOPLASM
     Dosage: ON DAY 1
     Route: 042
  4. CEDIRANIB. [Suspect]
     Active Substance: CEDIRANIB
     Indication: NEOPLASM
     Dosage: 1 TO 21 PER CYCLE
     Route: 042
  5. CEDIRANIB. [Suspect]
     Active Substance: CEDIRANIB
     Dosage: DAILY
     Route: 042

REACTIONS (14)
  - Proteinuria [Unknown]
  - Haemoptysis [Unknown]
  - Decreased appetite [Unknown]
  - Palmar-plantar erythrodysaesthesia syndrome [Unknown]
  - Confusional state [Unknown]
  - Left ventricular dysfunction [Unknown]
  - Hyponatraemia [Unknown]
  - Stomatitis [Unknown]
  - Alanine aminotransferase abnormal [Unknown]
  - Central nervous system haemorrhage [Unknown]
  - Haemoglobin abnormal [Unknown]
  - Diarrhoea [Unknown]
  - Blood creatinine increased [Unknown]
  - Lymphopenia [Unknown]
